FAERS Safety Report 4647054-5 (Version None)
Quarter: 2005Q2

REPORT INFORMATION
  Report Type: 
  Country: None (occurrence: None)
  Receive Date: 20050331
  Receipt Date: 20050117
  Transmission Date: 20051028
  Serious: No
  Sender: FDA-Public Use
  Company Number: 05P-165-0286867-00

PATIENT
  Age: 16 Year
  Sex: Female
  Weight: 52.1637 kg

DRUGS (7)
  1. HUMIRA [Suspect]
     Indication: CROHN'S DISEASE
     Dosage: 40 MG, 1 IN 2 WK, SUBCUTANEOUS
     Route: 058
     Dates: start: 20030101
  2. BALSALAZIDE SODIUM [Concomitant]
  3. PREDNISONE TAB [Concomitant]
  4. VICON FORTE [Concomitant]
  5. OMEPRAZOLE [Concomitant]
  6. RANITIDINE HYDROCHLORIDE [Concomitant]
  7. CALCIUM CARBONATE [Concomitant]

REACTIONS (2)
  - EPSTEIN-BARR VIRUS INFECTION [None]
  - HEART RATE IRREGULAR [None]
